FAERS Safety Report 6589289-0 (Version None)
Quarter: 2010Q1

REPORT INFORMATION
  Report Type: 
  Country: None (occurrence: None)
  Receive Date: 20100218
  Receipt Date: 20100208
  Transmission Date: 20100710
  Serious: Yes (Hospitalization)
  Sender: FDA-Public Use
  Company Number: DE-BAXTER-2010BH002479

PATIENT
  Age: 55 Year
  Sex: Male
  Weight: 76 kg

DRUGS (15)
  1. DIANEAL [Suspect]
     Indication: PERITONEAL DIALYSIS
     Route: 033
     Dates: start: 20070227
  2. DIANEAL [Suspect]
     Route: 033
     Dates: start: 20070227
  3. EXTRANEAL [Suspect]
     Indication: PERITONEAL DIALYSIS
     Route: 033
     Dates: start: 20070227
  4. PHYSIOSOL IN PLASTIC CONTAINER [Suspect]
     Indication: PERITONEAL DIALYSIS
     Route: 033
     Dates: start: 20070227
  5. FUROSEMIDE [Concomitant]
     Indication: RENAL FAILURE
     Route: 065
  6. RENAGEL [Concomitant]
     Indication: RENAL FAILURE
     Route: 065
  7. CALCITRIOL [Concomitant]
     Indication: RENAL DISORDER
     Route: 065
  8. EISEN-II-SULFAT [Concomitant]
     Indication: RENAL FAILURE
     Route: 065
  9. DARBEPOETIN ALFA [Concomitant]
     Indication: RENAL FAILURE
     Route: 065
  10. BISOPROLOL FUMARATE [Concomitant]
     Indication: HYPERTENSION
     Route: 065
  11. CANDESARTAN [Concomitant]
     Indication: HYPERTENSION
     Route: 065
  12. AMLODIPINE [Concomitant]
     Indication: HYPERTENSION
     Route: 065
  13. CLONIDINE [Concomitant]
     Indication: HYPERTENSION
     Route: 065
  14. DOXAZOSIN MESYLATE [Concomitant]
     Indication: HYPERTENSION
     Route: 065
  15. SIMVASTATIN [Concomitant]
     Indication: HYPERTENSION
     Route: 065

REACTIONS (4)
  - DEVICE LEAKAGE [None]
  - MALAISE [None]
  - PERITONITIS BACTERIAL [None]
  - STAPHYLOCOCCAL INFECTION [None]
